FAERS Safety Report 5904028-1 (Version None)
Quarter: 2008Q3

REPORT INFORMATION
  Report Type: 
  Country: None (occurrence: None)
  Receive Date: 20080919
  Receipt Date: 20080721
  Transmission Date: 20090109
  Serious: No
  Sender: FDA-Public Use
  Company Number: US-WYE-H05210808

PATIENT
  Age: 56 Year
  Sex: Female

DRUGS (6)
  1. PRISTIQ [Suspect]
     Indication: DEPRESSION
     Dosage: 50 MG (FREQUENCY UNSPECIFIED), ORAL
     Route: 048
     Dates: start: 20080717
  2. RESTORIL [Concomitant]
  3. ZOLOFT [Concomitant]
  4. PROVIGIL [Concomitant]
  5. WELLBUTRIN [Concomitant]
  6. XANAX [Concomitant]

REACTIONS (1)
  - INSOMNIA [None]
